FAERS Safety Report 18811499 (Version 1)
Quarter: 2021Q1

REPORT INFORMATION
  Report Type: Spontaneous
  Country: DE (occurrence: DE)
  Receive Date: 20210130
  Receipt Date: 20210130
  Transmission Date: 20210419
  Serious: No
  Sender: FDA-Public Use
  Company Number: DE-HORMOSAN PHARMA GMBH-2021-00619

PATIENT
  Sex: Male

DRUGS (1)
  1. QUETIAPIN?HORMOSAN 50 MG RETARDTABLETTEN [Suspect]
     Active Substance: QUETIAPINE FUMARATE
     Indication: PRODUCT USED FOR UNKNOWN INDICATION
     Dosage: 50 MILLIGRAM, BID (BEFORE GOING TO BED)
     Route: 065

REACTIONS (3)
  - Lipase increased [Unknown]
  - Lipids increased [Unknown]
  - Lymphoedema [Unknown]
